FAERS Safety Report 12321628 (Version 2)
Quarter: 2016Q2

REPORT INFORMATION
  Report Type: Report from Study
  Country: US (occurrence: US)
  Receive Date: 20160502
  Receipt Date: 20160504
  Transmission Date: 20160815
  Serious: Yes (Hospitalization)
  Sender: FDA-Public Use
  Company Number: US-EISAI MEDICAL RESEARCH-EC-2016-015677

PATIENT
  Age: 65 Year
  Sex: Female
  Weight: 56.69 kg

DRUGS (26)
  1. LENVIMA [Suspect]
     Active Substance: LENVATINIB
     Indication: THYROID CANCER
     Route: 048
     Dates: start: 201603, end: 20160415
  2. HYDROCHLOROTHIAZIDE. [Concomitant]
     Active Substance: HYDROCHLOROTHIAZIDE
  3. VALSARTAN. [Concomitant]
     Active Substance: VALSARTAN
  4. SYMBICORT [Concomitant]
     Active Substance: BUDESONIDE\FORMOTEROL FUMARATE DIHYDRATE
  5. COENZYME Q10 [Concomitant]
     Active Substance: UBIDECARENONE
  6. ACETAMINOPHEN. [Concomitant]
     Active Substance: ACETAMINOPHEN
  7. ASPIRIN. [Concomitant]
     Active Substance: ASPIRIN
  8. CHOLECALCIFEROL [Concomitant]
     Active Substance: CHOLECALCIFEROL
  9. LORAZEPAM. [Concomitant]
     Active Substance: LORAZEPAM
  10. LENVIMA [Suspect]
     Active Substance: LENVATINIB
     Indication: THYROID CANCER
     Route: 048
     Dates: start: 20160502
  11. ATELVIA [Concomitant]
     Active Substance: RISEDRONATE SODIUM
  12. CALCIUM CITRATE [Concomitant]
     Active Substance: CALCIUM CITRATE
  13. CRESTOR [Concomitant]
     Active Substance: ROSUVASTATIN CALCIUM
  14. GABAPENTIN. [Concomitant]
     Active Substance: GABAPENTIN
  15. LEVOTHYROXINE. [Concomitant]
     Active Substance: LEVOTHYROXINE
  16. LIDOCAINE 5% TRANSDERMAL PATCH [Concomitant]
  17. METPROLOL [Concomitant]
     Active Substance: METOPROLOL
  18. OLMESARTAN HCTZ [Concomitant]
  19. OMEGA-3 ACIDS [Concomitant]
     Active Substance: OMEGA-3 FATTY ACIDS
  20. CLONIDINE. [Concomitant]
     Active Substance: CLONIDINE
  21. TURMERIC ROOT EXTRACT [Concomitant]
  22. DOCUSATE [Concomitant]
     Active Substance: DOCUSATE
  23. TRAMADOL. [Concomitant]
     Active Substance: TRAMADOL
  24. AMLODIPINE [Concomitant]
     Active Substance: AMLODIPINE BESYLATE
  25. CELEBREX [Concomitant]
     Active Substance: CELECOXIB
  26. FAMOTIDINE. [Concomitant]
     Active Substance: FAMOTIDINE

REACTIONS (3)
  - Headache [Unknown]
  - Hypertension [Recovering/Resolving]
  - Chest pain [Recovered/Resolved]

NARRATIVE: CASE EVENT DATE: 201603
